FAERS Safety Report 9343302 (Version 2)
Quarter: 2013Q3

REPORT INFORMATION
  Report Type: Report from Study
  Country: IE (occurrence: IE)
  Receive Date: 20130612
  Receipt Date: 20130708
  Transmission Date: 20140515
  Serious: Yes (Hospitalization)
  Sender: FDA-Public Use
  Company Number: IE-ROCHE-1235525

PATIENT
  Age: 58 Year
  Sex: Male
  Weight: 98 kg

DRUGS (3)
  1. REBETOL [Suspect]
     Indication: HEPATITIS C
     Route: 048
     Dates: start: 20130415
  2. VIRAFERONPEG [Suspect]
     Indication: HEPATITIS C
     Route: 058
     Dates: start: 20130415
  3. NO DRUG ADMINISTERED [Suspect]
     Indication: HEPATITIS C
     Route: 065

REACTIONS (2)
  - Blood urea increased [Recovered/Resolved]
  - Blood creatinine increased [Recovered/Resolved]
